FAERS Safety Report 8818997 (Version 1)
Quarter: 2012Q4

REPORT INFORMATION
  Report Type: Report from Study
  Country: JP (occurrence: JP)
  Receive Date: 20121001
  Receipt Date: 20121001
  Transmission Date: 20130627
  Serious: Yes (Hospitalization)
  Sender: FDA-Public Use
  Company Number: JP-VERTEX PHARMACEUTICAL INC.-AE-2012-007988

PATIENT
  Age: 61 Year
  Sex: Male

DRUGS (11)
  1. VX-950 [Suspect]
     Indication: HEPATITIS C
     Dosage: 1500 mg, qd
     Route: 048
     Dates: start: 20120403, end: 20120406
  2. VX-950 [Suspect]
     Dosage: 1000 mg, qd
     Route: 048
     Dates: start: 20120407, end: 20120518
  3. RIBAVIRIN [Suspect]
     Indication: HEPATITIS C
     Dosage: 600 mg, UNK
     Route: 048
     Dates: start: 20120403, end: 20120406
  4. RIBAVIRIN [Suspect]
     Dosage: 400 mg, qd
     Route: 048
     Dates: start: 20120407, end: 20120918
  5. PEGINTERFERON ALFA-2B [Suspect]
     Indication: HEPATITIS C
     Dosage: 1.5 UNK, UNK
     Route: 058
     Dates: start: 20120403, end: 20120918
  6. URALYT                             /06402701/ [Concomitant]
     Dosage: 2 DF, qd
     Route: 048
  7. HIRUDOID                           /00723701/ [Concomitant]
     Dosage: UNK
     Route: 061
     Dates: start: 20120403
  8. NEOPHAGEN                          /00467204/ [Concomitant]
     Dosage: 100 ml, qd
     Route: 042
     Dates: start: 20120413, end: 20120501
  9. NEOPHAGEN                          /00467204/ [Concomitant]
     Dosage: 100 ml, UNK
     Route: 042
     Dates: start: 20120530, end: 20120619
  10. ALOSITOL [Concomitant]
     Dosage: 300 mg, qd
     Route: 048
  11. GLYCYRON                           /00466401/ [Concomitant]
     Dosage: 6 DF, qd
     Route: 048
     Dates: start: 20120621

REACTIONS (2)
  - Renal disorder [Recovered/Resolved]
  - Rash [Recovered/Resolved]
